FAERS Safety Report 6924865-4 (Version None)
Quarter: 2010Q3

REPORT INFORMATION
  Report Type: 
  Country: None (occurrence: None)
  Receive Date: 20100816
  Receipt Date: 20100806
  Transmission Date: 20110219
  Serious: Yes (Hospitalization, Other)
  Sender: FDA-Public Use
  Company Number: US-NOVOPROD-312723

PATIENT
  Age: 60 Year
  Sex: Female
  Weight: 146 kg

DRUGS (9)
  1. VICTOZA [Suspect]
     Indication: DIABETES MELLITUS
     Dosage: UNKNOWN
     Route: 058
     Dates: start: 20100531, end: 20100601
  2. LEVOTHYROXINE [Concomitant]
     Indication: HYPOTHYROIDISM
     Dosage: UNK
  3. SIMVASTATIN [Concomitant]
     Indication: HYPERLIPIDAEMIA
     Dosage: UNK
  4. GABAPENTIN [Concomitant]
     Indication: DIABETIC NEUROPATHY
     Dosage: UNK
  5. ASPIRIN [Concomitant]
     Indication: CORONARY ARTERY DISEASE
     Dosage: UNK
  6. SPIRONOLACTONE [Concomitant]
     Indication: OEDEMA
     Dosage: UNK
  7. METFORMIN [Concomitant]
     Indication: DIABETES MELLITUS
     Dosage: UNK
  8. AMARYL [Concomitant]
     Indication: DIABETES MELLITUS
  9. HUMALOG MIX                        /01293501/ [Concomitant]
     Indication: DIABETES MELLITUS
     Dosage: 1.8 MG, QD
     Dates: start: 20100531, end: 20100601

REACTIONS (1)
  - PANCREATITIS [None]
